FAERS Safety Report 25039624 (Version 2)
Quarter: 2025Q1

REPORT INFORMATION
  Report Type: Report from Study
  Country: IT (occurrence: IT)
  Receive Date: 20250305
  Receipt Date: 20250307
  Transmission Date: 20250409
  Serious: Yes (Other)
  Sender: NOVARTIS
  Company Number: IT-002147023-NVSC2025IT035988

PATIENT
  Age: 57 Year
  Sex: Female

DRUGS (1)
  1. COSENTYX [Suspect]
     Active Substance: SECUKINUMAB
     Indication: Psoriatic arthropathy
     Dosage: 300 MG, QMO
     Route: 058
     Dates: start: 20240703

REACTIONS (10)
  - Immunodeficiency [Unknown]
  - Infection [Not Recovered/Not Resolved]
  - Pathogen resistance [Unknown]
  - Ill-defined disorder [Unknown]
  - Ear infection [Unknown]
  - Lymphadenopathy [Unknown]
  - Swelling face [Unknown]
  - Granuloma [Unknown]
  - Pain [Unknown]
  - Dysstasia [Unknown]
